FAERS Safety Report 8359976-2 (Version None)
Quarter: 2012Q2

REPORT INFORMATION
  Report Type: 
  Country: None (occurrence: None)
  Receive Date: 20120515
  Receipt Date: 20120503
  Transmission Date: 20120825
  Serious: Yes (Hospitalization, Other)
  Sender: FDA-Public Use
  Company Number: BR-JNJFOC-20120506493

PATIENT
  Sex: Female
  Weight: 75 kg

DRUGS (5)
  1. MESALAMINE [Concomitant]
     Indication: ANTIINFLAMMATORY THERAPY
     Route: 065
     Dates: start: 20090601
  2. AZATHIOPRINE [Concomitant]
     Indication: IMMUNOSUPPRESSION
     Route: 065
     Dates: start: 20090601
  3. REMICADE [Suspect]
     Route: 042
     Dates: start: 20110101
  4. REMICADE [Suspect]
     Indication: CROHN'S DISEASE
     Route: 042
     Dates: start: 20090601
  5. REMICADE [Suspect]
     Route: 042
     Dates: start: 20120101

REACTIONS (10)
  - BLOOD PRESSURE INCREASED [None]
  - RASH GENERALISED [None]
  - INFUSION RELATED REACTION [None]
  - PRURITUS [None]
  - LOSS OF CONSCIOUSNESS [None]
  - BLOOD URINE PRESENT [None]
  - TACHYCARDIA [None]
  - CROHN'S DISEASE [None]
  - APPLICATION SITE HYPERSENSITIVITY [None]
  - DYSPNOEA [None]
